FAERS Safety Report 6021637-2 (Version None)
Quarter: 2008Q4

REPORT INFORMATION
  Report Type: 
  Country: None (occurrence: None)
  Receive Date: 20081229
  Receipt Date: 20081215
  Transmission Date: 20090506
  Serious: Yes (Death)
  Sender: FDA-Public Use
  Company Number: US-PFIZER INC-2008153608

PATIENT
  Age: 43 Year
  Sex: Male

DRUGS (6)
  1. CLOZAPINE [Suspect]
     Route: 048
  2. HALOPERIDOL [Suspect]
     Route: 048
  3. GEMFIBROZIL [Suspect]
     Route: 048
  4. BENZOTROPINE [Suspect]
     Route: 048
  5. SENNA [Suspect]
     Route: 048
  6. MULTI-VITAMINS [Suspect]
     Route: 048

REACTIONS (2)
  - COMPLETED SUICIDE [None]
  - DRUG TOXICITY [None]
